FAERS Safety Report 5730425-3 (Version None)
Quarter: 2008Q2

REPORT INFORMATION
  Report Type: 
  Country: None (occurrence: None)
  Receive Date: 20080505
  Receipt Date: 20080505
  Transmission Date: 20081010
  Serious: Yes (Other)
  Sender: FDA-Public Use
  Company Number: None

PATIENT
  Sex: Male
  Weight: 72.5755 kg

DRUGS (2)
  1. PLAVIX [Suspect]
     Indication: ARTERIAL STENT INSERTION
     Dates: start: 20050705, end: 20060301
  2. TOPROL-XL [Suspect]
     Indication: ARTERIAL STENT INSERTION
     Dates: start: 20050705, end: 20060301

REACTIONS (4)
  - MENTAL DISORDER [None]
  - PRURITUS [None]
  - RASH [None]
  - SKIN DISCOLOURATION [None]
